FAERS Safety Report 8886033 (Version 2)
Quarter: 2012Q4

REPORT INFORMATION
  Report Type: 
  Country: IT (occurrence: IT)
  Receive Date: 20121105
  Receipt Date: 20121127
  Transmission Date: 20130627
  Serious: Yes (Hospitalization, Other)
  Sender: FDA-Public Use
  Company Number: IT-NAPPMUNDI-DEU-2012-0009732

PATIENT
  Weight: 2.24 kg

DRUGS (3)
  1. MORPHINE SULFATE [Suspect]
     Indication: DRUG WITHDRAWAL SYNDROME NEONATAL
     Dosage: 0.5 mg/kg, daily
     Route: 048
  2. MORPHINE SULFATE [Suspect]
     Dosage: 0.4 mg/kg, UNK
     Route: 048
  3. ZIDOVUDINE [Concomitant]
     Indication: INFECTION PROPHYLAXIS
     Route: 048

REACTIONS (3)
  - Renal failure acute [Recovered/Resolved]
  - Hydronephrosis [Recovered/Resolved]
  - Nephropathy toxic [Recovered/Resolved]
